FAERS Safety Report 11188843 (Version 1)
Quarter: 2015Q2

REPORT INFORMATION
  Report Type: Spontaneous
  Country: US (occurrence: None)
  Receive Date: 20150611
  Receipt Date: 20150611
  Transmission Date: 20150821
  Serious: Yes (Hospitalization)
  Sender: FDA-Public Use
  Company Number: US-H14001-15-00895

PATIENT
  Age: 21 Year
  Sex: Female

DRUGS (2)
  1. BROADSPECTRUM ANTIBIOTICS (BROAD SPECTRUM ANTIBIOTICS) [Concomitant]
  2. LAMOTRIGINE (LAMOTRIGINE) (UNKNOWN) (LAMOTRIGINE) [Suspect]
     Active Substance: LAMOTRIGINE
     Indication: BORDERLINE PERSONALITY DISORDER

REACTIONS (2)
  - Drug reaction with eosinophilia and systemic symptoms [None]
  - Hypotension [None]
